FAERS Safety Report 14800103 (Version 1)
Quarter: 2018Q2

REPORT INFORMATION
  Report Type: Spontaneous
  Country: JP (occurrence: JP)
  Receive Date: 20180424
  Receipt Date: 20180424
  Transmission Date: 20180711
  Serious: Yes (Other)
  Sender: FDA-Public Use
  Company Number: JP-BAYER-2018-054002

PATIENT
  Age: 83 Year
  Sex: Female
  Weight: 52.3 kg

DRUGS (6)
  1. BAYASPIRIN 100 MG [Suspect]
     Active Substance: ASPIRIN
     Indication: CEREBRAL ARTERY EMBOLISM
     Dosage: 100MG DAILY
     Route: 048
     Dates: end: 20180320
  2. LIVALO [Concomitant]
     Active Substance: PITAVASTATIN CALCIUM
     Indication: HYPERLIPIDAEMIA
     Dosage: 2MG DAILY
     Route: 048
     Dates: end: 20180320
  3. RABEPRAZOLE SODIUM. [Concomitant]
     Active Substance: RABEPRAZOLE SODIUM
     Indication: GASTRIC ULCER
     Dosage: 10MG DAILY
     Route: 048
     Dates: end: 20180320
  4. XARELTO [Suspect]
     Active Substance: RIVAROXABAN
     Indication: ATRIAL FIBRILLATION
     Dosage: 15MG DAILY
     Route: 048
     Dates: end: 20180320
  5. AIMIX [Suspect]
     Active Substance: AMLODIPINE BESYLATE\IRBESARTAN
     Indication: HYPERTENSION
     Dosage: UNK
     Dates: end: 20180320
  6. XARELTO [Suspect]
     Active Substance: RIVAROXABAN
     Indication: CEREBRAL ARTERY EMBOLISM

REACTIONS (1)
  - Cerebral infarction [Recovering/Resolving]

NARRATIVE: CASE EVENT DATE: 20180320
